FAERS Safety Report 20066148 (Version 1)
Quarter: 2021Q4

REPORT INFORMATION
  Report Type: Spontaneous
  Country: US (occurrence: US)
  Receive Date: 20211114
  Receipt Date: 20211114
  Transmission Date: 20220303
  Serious: No
  Sender: FDA-Public Use
  Company Number: US-AMGEN-USASP2021176168

PATIENT
  Age: 78 Year
  Sex: Female

DRUGS (11)
  1. OTEZLA [Suspect]
     Active Substance: APREMILAST
     Indication: Psoriasis
     Dosage: 30 MILLIGRAM, BID
     Route: 048
  2. KETOCONAZOLE [Concomitant]
     Active Substance: KETOCONAZOLE
     Dosage: 1 APPLICATION, 1-2 WEEKLY
     Route: 061
  3. TRIAMCINOLONE ACETONIDE [Concomitant]
     Active Substance: TRIAMCINOLONE ACETONIDE
     Dosage: 1 UNK, BID
     Route: 061
  4. FOLIC ACID [Concomitant]
     Active Substance: FOLIC ACID
     Dosage: 1 MILLIGRAM, QD
     Route: 048
  5. GABAPENTIN [Concomitant]
     Active Substance: GABAPENTIN
     Dosage: 600 MILLIGRAM, BID
     Route: 048
  6. LUTEIN [Concomitant]
     Active Substance: LUTEIN
     Dosage: 1 DOSAGE FORM, QD
     Route: 048
  7. METHYLCOBALAMIN [Concomitant]
     Active Substance: METHYLCOBALAMIN
     Dosage: 1 DOSAGE FORM, QD
     Route: 048
  8. METHOTREXATE SODIUM [Concomitant]
     Active Substance: METHOTREXATE SODIUM
     Dosage: 6 DOSAGE FORM, QWK
     Route: 048
  9. SOTALOL [Concomitant]
     Active Substance: SOTALOL
     Dosage: 80 MILLIGRAM, QD
     Route: 048
  10. XARELTO [Concomitant]
     Active Substance: RIVAROXABAN
     Dosage: 1 DOSAGE FORM, QD
     Route: 048
  11. CLOBETASOL [Concomitant]
     Active Substance: CLOBETASOL
     Dosage: 1 DOSAGE FORM, BID

REACTIONS (3)
  - Psoriasis [Unknown]
  - Seborrhoeic dermatitis [Unknown]
  - Seborrhoeic keratosis [Unknown]
